FAERS Safety Report 8178106-3 (Version None)
Quarter: 2012Q1

REPORT INFORMATION
  Report Type: 
  Country: None (occurrence: None)
  Receive Date: 20120301
  Receipt Date: 20120221
  Transmission Date: 20120608
  Serious: Yes (Other)
  Sender: FDA-Public Use
  Company Number: US-ELI_LILLY_AND_COMPANY-US201202006373

PATIENT
  Sex: Male

DRUGS (5)
  1. ILETIN [Suspect]
     Indication: TYPE 1 DIABETES MELLITUS
     Dosage: UNK, UNKNOWN
  2. HUMULIN R [Suspect]
     Indication: TYPE 1 DIABETES MELLITUS
     Dosage: 3 U, EACH MORNING
     Dates: start: 19870101
  3. HUMULIN N [Suspect]
     Dosage: 15 U, EACH MORNING
     Dates: start: 20111201
  4. HUMULIN R [Suspect]
     Dosage: 3 U, EACH MORNING
     Dates: start: 19870101
  5. HUMULIN N [Suspect]
     Indication: TYPE 1 DIABETES MELLITUS
     Dosage: 16 U, EACH MORNING
     Dates: start: 19870101, end: 20111201

REACTIONS (7)
  - HYPERSENSITIVITY [None]
  - ORAL PAIN [None]
  - FEELING ABNORMAL [None]
  - BLOOD GLUCOSE INCREASED [None]
  - CATATONIA [None]
  - BLOOD GLUCOSE DECREASED [None]
  - HEADACHE [None]
